FAERS Safety Report 21236491 (Version 2)
Quarter: 2022Q4

REPORT INFORMATION
  Report Type: Spontaneous
  Country: US (occurrence: US)
  Receive Date: 20220822
  Receipt Date: 20221021
  Transmission Date: 20230112
  Serious: Yes (Other)
  Sender: FDA-Public Use
  Company Number: US-CELGENE-163-20785-10060342

PATIENT
  Age: 31 Year
  Sex: Female

DRUGS (5)
  1. THALOMID [Suspect]
     Active Substance: THALIDOMIDE
     Indication: Product used for unknown indication
     Route: 050
     Dates: start: 200712
  2. THALOMID [Suspect]
     Active Substance: THALIDOMIDE
     Dosage: FREQUENCY TEXT: DAILY?200MG-100MG?DRUG TAKEN BY MALE PATIENT ORALLY
     Route: 050
     Dates: start: 200703
  3. THALOMID [Suspect]
     Active Substance: THALIDOMIDE
     Dosage: DRUG TAKEN BY MALE PATIENT ORALLY
     Route: 050
     Dates: end: 20100526
  4. PROMETHAZINE [Concomitant]
     Active Substance: PROMETHAZINE HYDROCHLORIDE
     Indication: Product used for unknown indication
     Route: 050
  5. FLUOXETINE [Concomitant]
     Active Substance: FLUOXETINE HYDROCHLORIDE
     Indication: Product used for unknown indication
     Route: 050

REACTIONS (4)
  - Exposure via body fluid [Unknown]
  - Cholelithiasis [Unknown]
  - Live birth [Unknown]
  - Pregnancy with contraceptive device [Unknown]
